FAERS Safety Report 16504107 (Version 2)
Quarter: 2019Q3

REPORT INFORMATION
  Report Type: Spontaneous
  Country: US (occurrence: US)
  Receive Date: 20190701
  Receipt Date: 20190802
  Transmission Date: 20191004
  Serious: No
  Sender: FDA-Public Use
  Company Number: US-GLAXOSMITHKLINE-US2019116610

PATIENT
  Age: 61 Year
  Sex: Female

DRUGS (1)
  1. NICORETTE [Suspect]
     Active Substance: NICOTINE
     Indication: SMOKING CESSATION THERAPY
     Dosage: 4 MG, UNK
     Dates: start: 20190625, end: 20190626

REACTIONS (2)
  - Tooth discolouration [Unknown]
  - Product complaint [Unknown]

NARRATIVE: CASE EVENT DATE: 20190626
